FAERS Safety Report 6737598-4 (Version None)
Quarter: 2010Q2

REPORT INFORMATION
  Report Type: 
  Country: None (occurrence: None)
  Receive Date: 20100519
  Receipt Date: 20100510
  Transmission Date: 20101027
  Serious: Yes (Other)
  Sender: FDA-Public Use
  Company Number: B0653020A

PATIENT
  Age: 43 Year
  Sex: 0

DRUGS (1)
  1. AMOXICILLIN AND CLAVULANATE POTASSIUM [Suspect]

REACTIONS (2)
  - ANAPHYLACTIC REACTION [None]
  - SKIN TEST POSITIVE [None]
